FAERS Safety Report 19957365 (Version 2)
Quarter: 2021Q4

REPORT INFORMATION
  Report Type: Spontaneous
  Country: US (occurrence: US)
  Receive Date: 20211014
  Receipt Date: 20211118
  Transmission Date: 20220303
  Serious: Yes (Other)
  Sender: FDA-Public Use
  Company Number: US-ELI_LILLY_AND_COMPANY-US202110003471

PATIENT
  Age: 34 Year
  Sex: Female
  Weight: 90.81 kg

DRUGS (7)
  1. ETESEVIMAB [Suspect]
     Active Substance: ETESEVIMAB
     Indication: COVID-19
     Dosage: UNK, SINGLE
     Route: 042
     Dates: start: 20211005, end: 20211005
  2. ETESEVIMAB [Suspect]
     Active Substance: ETESEVIMAB
     Dosage: UNK, SINGLE
     Route: 042
     Dates: start: 20211005, end: 20211005
  3. BAMLANIVIMAB [Suspect]
     Active Substance: BAMLANIVIMAB
     Indication: COVID-19
     Dosage: UNK, SINGLE
     Route: 042
     Dates: start: 20211005, end: 20211005
  4. BENADRYL [Suspect]
     Active Substance: DIPHENHYDRAMINE HYDROCHLORIDE
     Indication: Chest discomfort
     Dosage: 50 MG, UNKNOWN
     Route: 042
  5. BENADRYL [Suspect]
     Active Substance: DIPHENHYDRAMINE HYDROCHLORIDE
     Indication: Retching
  6. BENADRYL [Suspect]
     Active Substance: DIPHENHYDRAMINE HYDROCHLORIDE
     Indication: Erythema
  7. BENADRYL [Suspect]
     Active Substance: DIPHENHYDRAMINE HYDROCHLORIDE
     Indication: Feeling abnormal

REACTIONS (11)
  - Erythema [Unknown]
  - Retching [Unknown]
  - Chest discomfort [Recovering/Resolving]
  - Dyspnoea [Unknown]
  - Feeling abnormal [Unknown]
  - Nausea [Recovered/Resolved]
  - Headache [Unknown]
  - Fatigue [Unknown]
  - Ventricular extrasystoles [Unknown]
  - Cyanosis [Unknown]
  - Blood pressure diastolic increased [Unknown]

NARRATIVE: CASE EVENT DATE: 20211005
